FAERS Safety Report 14034871 (Version 2)
Quarter: 2017Q4

REPORT INFORMATION
  Report Type: Report from Study
  Country: CA (occurrence: CA)
  Receive Date: 20171003
  Receipt Date: 20171016
  Transmission Date: 20180321
  Serious: Yes (Other)
  Sender: FDA-Public Use
  Company Number: CA-GLAXOSMITHKLINE-CA2017GSK151156

PATIENT
  Sex: Male

DRUGS (2)
  1. AVAMYS [Suspect]
     Active Substance: FLUTICASONE FUROATE
     Indication: ASTHMA
     Dosage: 27.5 UG, UNK
  2. SALBUTAMOL SULPHATE [Suspect]
     Active Substance: ALBUTEROL SULFATE
     Indication: PRODUCT USED FOR UNKNOWN INDICATION
     Dosage: UNK

REACTIONS (15)
  - Alcoholism [Recovered/Resolved]
  - Drug effect incomplete [Unknown]
  - Deafness [Unknown]
  - Nasal septum deviation [Unknown]
  - Body dysmorphic disorder [Unknown]
  - Post-traumatic stress disorder [Unknown]
  - Obsessive-compulsive disorder [Unknown]
  - Pain [Unknown]
  - Anxiety [Unknown]
  - Borderline personality disorder [Unknown]
  - Binge eating [Unknown]
  - Asthma [Unknown]
  - Autism spectrum disorder [Unknown]
  - Intervertebral disc protrusion [Unknown]
  - Sleep apnoea syndrome [Unknown]

NARRATIVE: CASE EVENT DATE: 2014
